FAERS Safety Report 5321777-7 (Version None)
Quarter: 2007Q2

REPORT INFORMATION
  Report Type: 
  Country: None (occurrence: None)
  Receive Date: 20070507
  Receipt Date: 20070424
  Transmission Date: 20071010
  Serious: No
  Sender: FDA-Public Use
  Company Number: SP01215

PATIENT
  Age: 42 Year
  Sex: Male
  Weight: 82.1011 kg

DRUGS (1)
  1. MOVIPREP [Suspect]
     Indication: COLONOSCOPY
     Dosage: 2 LIT, ORAL
     Route: 048
     Dates: start: 20070423, end: 20070423

REACTIONS (1)
  - ANAPHYLACTIC REACTION [None]
